FAERS Safety Report 7612009-5 (Version None)
Quarter: 2011Q3

REPORT INFORMATION
  Report Type: 
  Country: None (occurrence: None)
  Receive Date: 20110715
  Receipt Date: 20110711
  Transmission Date: 20111222
  Serious: Yes (Other)
  Sender: FDA-Public Use
  Company Number: US-JNJFOC-20110704972

PATIENT
  Sex: Female
  Weight: 69.4 kg

DRUGS (5)
  1. ZOMIG [Concomitant]
     Route: 065
  2. TOPAMAX [Suspect]
     Indication: MIGRAINE PROPHYLAXIS
     Route: 048
     Dates: start: 20101001, end: 20110301
  3. MAXALT [Concomitant]
     Route: 065
  4. FROVA [Concomitant]
     Route: 065
  5. PREDNISONE [Concomitant]
     Route: 065

REACTIONS (1)
  - BREAST CYST [None]
